FAERS Safety Report 8566911-0 (Version None)
Quarter: 2012Q3

REPORT INFORMATION
  Report Type: 
  Country: None (occurrence: None)
  Receive Date: 20120803
  Receipt Date: 20110822
  Transmission Date: 20120928
  Serious: No
  Sender: FDA-Public Use
  Company Number: US-ABBOTT-11P-163-0848183-00

PATIENT
  Sex: Male
  Weight: 89.438 kg

DRUGS (10)
  1. ASPIRIN [Concomitant]
     Indication: FLUSHING
  2. PLAVIX [Concomitant]
     Indication: CARDIAC DISORDER
  3. ZOCOR [Concomitant]
     Indication: BLOOD CHOLESTEROL INCREASED
  4. AMBIEN [Concomitant]
     Indication: PRODUCT USED FOR UNKNOWN INDICATION
  5. NIASPAN [Suspect]
     Indication: HIGH DENSITY LIPOPROTEIN DECREASED
     Dates: start: 20110601
  6. ASPIRIN [Concomitant]
     Indication: PROPHYLAXIS
  7. TEKTURNA [Concomitant]
     Indication: BLOOD PRESSURE MANAGEMENT
  8. TEKTURNA [Concomitant]
     Indication: RENIN-ANGIOTENSIN SYSTEM INHIBITION
  9. OMEPRAZOLE [Concomitant]
     Indication: PRODUCT USED FOR UNKNOWN INDICATION
  10. METFORMIN HYDROCHLORIDE [Concomitant]
     Indication: DIABETES MELLITUS

REACTIONS (4)
  - ERYTHEMA [None]
  - DRY SKIN [None]
  - SKIN EXFOLIATION [None]
  - PAIN OF SKIN [None]
